FAERS Safety Report 6933654-6 (Version None)
Quarter: 2010Q3

REPORT INFORMATION
  Report Type: 
  Country: None (occurrence: None)
  Receive Date: 20100817
  Receipt Date: 20100802
  Transmission Date: 20110219
  Serious: Yes (Hospitalization, Other)
  Sender: FDA-Public Use
  Company Number: 2010P1000745

PATIENT
  Age: 70 Year
  Sex: Female

DRUGS (3)
  1. MINOCYCLINE HCL [Suspect]
     Indication: INFECTION
     Dosage: 100 MG; PO
     Route: 048
  2. CON MEDS [Concomitant]
  3. PREV MEDS [Concomitant]

REACTIONS (9)
  - ANTINUCLEAR ANTIBODY POSITIVE [None]
  - HYPOAESTHESIA [None]
  - MELAENA [None]
  - NEUROPATHY PERIPHERAL [None]
  - PARAESTHESIA [None]
  - PERONEAL NERVE PALSY [None]
  - PYREXIA [None]
  - VASCULITIS [None]
  - WEIGHT DECREASED [None]
